FAERS Safety Report 8294478-3 (Version None)
Quarter: 2012Q2

REPORT INFORMATION
  Report Type: 
  Country: None (occurrence: None)
  Receive Date: 20120418
  Receipt Date: 20120416
  Transmission Date: 20120825
  Serious: Yes (Death)
  Sender: FDA-Public Use
  Company Number: PHHY2012DK032111

PATIENT
  Sex: Female

DRUGS (2)
  1. WARFARIN SODIUM [Suspect]
     Indication: ANTICOAGULANT THERAPY
  2. HEPARIN [Suspect]
     Indication: ANTICOAGULANT THERAPY

REACTIONS (2)
  - CARDIAC DEATH [None]
  - MATERNAL EXPOSURE DURING PREGNANCY [None]
